FAERS Safety Report 8675077 (Version 2)
Quarter: 2012Q4

REPORT INFORMATION
  Report Type: Spontaneous
  Country: US (occurrence: None)
  Receive Date: 20120705
  Receipt Date: 20120921
  Transmission Date: 20130627
  Serious: Yes (Hospitalization)
  Sender: FDA-Public Use
  Company Number: LMI-2012-00209

PATIENT
  Age: 66 Year
  Sex: Male
  Weight: 87.54 kg

DRUGS (15)
  1. CARDIOLITE [Suspect]
     Indication: ATRIAL FIBRILLATION
     Dosage: INTRAVENOUS BOLUS
     Route: 040
     Dates: start: 20120613, end: 20120613
  2. CARDIOLITE [Suspect]
     Indication: CONGESTIVE CARDIOMYOPATHY
     Dosage: INTRAVENOUS BOLUS
     Route: 040
     Dates: start: 20120613, end: 20120613
  3. CARDIOLITE [Suspect]
     Indication: CARDIAC STRESS TEST
     Dosage: INTRAVENOUS BOLUS
     Route: 040
     Dates: start: 20120613, end: 20120613
  4. COUMADIN [Concomitant]
  5. CELEBREX [Concomitant]
  6. LIPITOR [Concomitant]
  7. LOTREL [Concomitant]
  8. PRILOSEC [Concomitant]
  9. LOPRESSOR [Concomitant]
  10. AMBIEN [Concomitant]
  11. VITAMIN E [Concomitant]
  12. ASCORBIC ACID [Concomitant]
  13. THERAGRAN (ERGOCALCIFEROL, ASCORBIC ACID, PYRIDOXINE HYDROCHLORIDE, THIAMINE HYDROCHLORIDE, CYANOCOB [Concomitant]
  14. CENTRUM SILVER [Concomitant]
  15. PROTONIX (PANTOPRAZOLE SODIUM SESQUIHYDRATE) [Concomitant]

REACTIONS (6)
  - Haematuria [None]
  - Urinary tract infection [None]
  - Nephrolithiasis [None]
  - Hydronephrosis [None]
  - International normalised ratio increased [None]
  - Hyperprothrombinaemia [None]
